FAERS Safety Report 8462731 (Version 4)
Quarter: 2016Q1

REPORT INFORMATION
  Report Type: Report from Study
  Country: US (occurrence: US)
  Receive Date: 20120316
  Receipt Date: 20160205
  Transmission Date: 20160526
  Serious: Yes (Other)
  Sender: FDA-Public Use
  Company Number: US-SANOFI-AVENTIS-2012SA015409

PATIENT
  Age: 66 Year
  Sex: Male
  Weight: 99 kg

DRUGS (14)
  1. MECLIZINE [Concomitant]
     Active Substance: MECLIZINE HYDROCHLORIDE
  2. LANTUS [Suspect]
     Active Substance: INSULIN GLARGINE
     Indication: TYPE 2 DIABETES MELLITUS
     Dosage: DOSE:18 UNIT(S)
     Route: 058
  3. METOPROLOL. [Concomitant]
     Active Substance: METOPROLOL
  4. SERTRALINE [Concomitant]
     Active Substance: SERTRALINE HYDROCHLORIDE
  5. HYDROXYZINE [Concomitant]
     Active Substance: HYDROXYZINE\HYDROXYZINE HYDROCHLORIDE
  6. CLONAZEPAM. [Concomitant]
     Active Substance: CLONAZEPAM
  7. LANTUS SOLOSTAR [Suspect]
     Active Substance: INSULIN GLARGINE
     Route: 065
  8. HYDROCHLOROTHIAZIDE. [Concomitant]
     Active Substance: HYDROCHLOROTHIAZIDE
  9. LANTUS [Suspect]
     Active Substance: INSULIN GLARGINE
     Indication: TYPE 2 DIABETES MELLITUS
     Dosage: APPROX SINCE 8 YEARS? DOSE:70 UNIT(S)
     Route: 058
  10. SIMVASTATIN. [Concomitant]
     Active Substance: SIMVASTATIN
  11. CLONIDINE. [Concomitant]
     Active Substance: CLONIDINE
  12. HYDROCODONE [Concomitant]
     Active Substance: HYDROCODONE
  13. ANTIHISTAMINES [Concomitant]
     Active Substance: ANTIHISTAMINES NOS
  14. POTASSIUM [Concomitant]
     Active Substance: POTASSIUM

REACTIONS (8)
  - Dry throat [Unknown]
  - Weight decreased [Unknown]
  - Gait disturbance [Not Recovered/Not Resolved]
  - Insomnia [Not Recovered/Not Resolved]
  - Incorrect product storage [Unknown]
  - Pneumonia [Unknown]
  - Micturition disorder [Not Recovered/Not Resolved]
  - Dysphonia [Not Recovered/Not Resolved]
